FAERS Safety Report 20719010 (Version 2)
Quarter: 2024Q1

REPORT INFORMATION
  Report Type: Other
  Country: GB (occurrence: GB)
  Receive Date: 20220418
  Receipt Date: 20240123
  Transmission Date: 20240409
  Serious: Yes (Disabling)
  Sender: FDA-Public Use
  Company Number: GB-MACLEODS PHARMACEUTICALS US LTD-MAC2022035211

PATIENT

DRUGS (9)
  1. DONEPEZIL [Suspect]
     Active Substance: DONEPEZIL
     Indication: Ill-defined disorder
     Dosage: 1 DOSAGE FORM, QD (10 MG 1 TABLET IN THE MORNING)
     Route: 065
     Dates: start: 20211201, end: 20220131
  2. DONEPEZIL [Suspect]
     Active Substance: DONEPEZIL
     Dosage: UNK
     Route: 065
     Dates: start: 20220404
  3. Adcal [Concomitant]
     Indication: Ill-defined disorder
     Dosage: UNK UNK, BID (TAKE ONE IN THE MORNING AND ONE IN THE EVENING)
     Route: 065
     Dates: start: 20210513, end: 20220131
  4. BROMFENAC [Concomitant]
     Active Substance: BROMFENAC SODIUM
     Indication: Ill-defined disorder
     Dosage: UNK UNK, QID (ONE DROP FOUR TIMES A DAY INTO THE LEFT EYE)
     Dates: start: 20210301
  5. DEXAMETHASONE [Concomitant]
     Active Substance: DEXAMETHASONE
     Indication: Ill-defined disorder
     Dosage: 1 GTT, QID, INTO LEFT EYE
     Dates: start: 20210301
  6. FELODIPINE [Concomitant]
     Active Substance: FELODIPINE
     Indication: Ill-defined disorder
     Dosage: UNK, QD (ONE TO BE TAKEN IN THE MORNING)
     Route: 065
     Dates: start: 20210301
  7. OMEPRAZOLE [Concomitant]
     Active Substance: OMEPRAZOLE
     Indication: Ill-defined disorder
     Dosage: 1 DOSAGE FORM, BID, TAKE ONE IN THE MORNING AND ONE IN THE EVENING
     Route: 065
     Dates: start: 20210301
  8. ACETAMINOPHEN [Concomitant]
     Active Substance: ACETAMINOPHEN
     Indication: Ill-defined disorder
     Dosage: UNK, PRN (2 UPTO TDS AS NEEDED)
     Route: 065
     Dates: start: 20220131, end: 20220204
  9. URSODIOL [Concomitant]
     Active Substance: URSODIOL
     Indication: Ill-defined disorder
     Dosage: UNK (TAKE ONE IN THE MORNING, ONE AT MIDDAY AND)
     Route: 065
     Dates: start: 20210301, end: 20220321

REACTIONS (1)
  - Arthralgia [Recovered/Resolved]

NARRATIVE: CASE EVENT DATE: 20220404
